FAERS Safety Report 6960293-3 (Version None)
Quarter: 2010Q3

REPORT INFORMATION
  Report Type: 
  Country: None (occurrence: None)
  Receive Date: 20100901
  Receipt Date: 20100823
  Transmission Date: 20110219
  Serious: Yes (Other)
  Sender: FDA-Public Use
  Company Number: US-SANOFI-AVENTIS-A03200904302

PATIENT
  Age: 41 Year
  Sex: Male
  Weight: 104.54 kg

DRUGS (4)
  1. AMBIEN [Suspect]
     Dosage: WOULD TAKE HALF A TABLET
     Route: 048
     Dates: start: 20090601, end: 20090701
  2. VALIUM [Concomitant]
  3. PERCOCET [Concomitant]
  4. VIAGRA [Concomitant]

REACTIONS (13)
  - AMNESIA [None]
  - CHEST PAIN [None]
  - DISEASE RECURRENCE [None]
  - DRUG INEFFECTIVE [None]
  - HAEMATOMA [None]
  - HEADACHE [None]
  - LACERATION [None]
  - LOSS OF CONSCIOUSNESS [None]
  - NECK PAIN [None]
  - PARAESTHESIA [None]
  - ROAD TRAFFIC ACCIDENT [None]
  - SENSORY LOSS [None]
  - WRONG TECHNIQUE IN DRUG USAGE PROCESS [None]
